FAERS Safety Report 7803920-0 (Version None)
Quarter: 2011Q4

REPORT INFORMATION
  Report Type: 
  Country: None (occurrence: None)
  Receive Date: 20111010
  Receipt Date: 20111004
  Transmission Date: 20120403
  Serious: Yes (Other)
  Sender: FDA-Public Use
  Company Number: US-PFIZER INC-2011216353

PATIENT
  Sex: Male
  Weight: 68 kg

DRUGS (1)
  1. PRISTIQ [Suspect]
     Indication: DEPRESSION
     Dosage: 50 MG, DAILY
     Dates: start: 20110827, end: 20110830

REACTIONS (3)
  - PRURITUS [None]
  - INSOMNIA [None]
  - ABNORMAL BEHAVIOUR [None]
